FAERS Safety Report 9387573 (Version 6)
Quarter: 2014Q2

REPORT INFORMATION
  Report Type: Spontaneous
  Country: US (occurrence: US)
  Receive Date: 20130708
  Receipt Date: 20140418
  Transmission Date: 20141212
  Serious: Yes (Hospitalization, Disabling, Other)
  Sender: FDA-Public Use
  Company Number: US-009507513-1307USA001889

PATIENT
  Sex: Female
  Weight: 52.15 kg

DRUGS (4)
  1. FOSAMAX [Suspect]
     Indication: OSTEOPOROSIS
     Dosage: 35 MG, QW
     Route: 048
     Dates: start: 2001, end: 2003
  2. FOSAMAX [Suspect]
     Dosage: 70 MG, QW
     Route: 048
     Dates: start: 2003, end: 20080423
  3. ALENDRONATE SODIUM [Suspect]
     Indication: OSTEOPOROSIS
     Dosage: 70 MG, QW
     Route: 048
     Dates: start: 20080423, end: 20091230
  4. ALENDRONATE SODIUM [Suspect]
     Dosage: 35 MG, QW
     Route: 048
     Dates: start: 20091230, end: 20100210

REACTIONS (17)
  - Femur fracture [Not Recovered/Not Resolved]
  - Intramedullary rod insertion [Unknown]
  - Femur fracture [Not Recovered/Not Resolved]
  - Intramedullary rod insertion [Unknown]
  - Surgery [Unknown]
  - Open reduction of fracture [Unknown]
  - Medical device removal [Unknown]
  - Fracture nonunion [Unknown]
  - Hypothyroidism [Unknown]
  - Hypoparathyroidism [Unknown]
  - Blood cholesterol increased [Unknown]
  - Kyphosis [Unknown]
  - Anaemia postoperative [Unknown]
  - Tachycardia [Unknown]
  - Arthritis [Unknown]
  - Bone deformity [Unknown]
  - Back pain [Not Recovered/Not Resolved]
